FAERS Safety Report 19361411 (Version 2)
Quarter: 2021Q2

REPORT INFORMATION
  Report Type: Report from Study
  Country: KR (occurrence: KR)
  Receive Date: 20210603
  Receipt Date: 20210618
  Transmission Date: 20210717
  Serious: Yes (Other)
  Sender: FDA-Public Use
  Company Number: KR-AMGEN INC.-KORCT2021084159

PATIENT
  Age: 52 Year
  Sex: Male

DRUGS (34)
  1. FILGRASTIM [Suspect]
     Active Substance: FILGRASTIM
     Dosage: 300 UNK
     Route: 065
     Dates: start: 20090804, end: 20090804
  2. PEMETREXED. [Concomitant]
     Active Substance: PEMETREXED
     Dosage: 895 MILLIGRAM
     Dates: start: 20090916, end: 20090916
  3. TRAMADOL. [Concomitant]
     Active Substance: TRAMADOL
     Indication: PRODUCT USED FOR UNKNOWN INDICATION
     Dosage: 50 MILLIGRAM
     Dates: start: 20090803, end: 20090803
  4. PEMETREXED. [Concomitant]
     Active Substance: PEMETREXED
     Indication: PRODUCT USED FOR UNKNOWN INDICATION
     Dosage: 895 MILLIGRAM
     Dates: start: 20090705, end: 20090705
  5. PEMETREXED. [Concomitant]
     Active Substance: PEMETREXED
     Dosage: 905 MILLIGRAM
     Dates: start: 20090916, end: 20090916
  6. PEMETREXED. [Concomitant]
     Active Substance: PEMETREXED
     Dosage: 930 MILLIGRAM
     Dates: start: 20090916, end: 20090916
  7. DEXAMETHASONE. [Concomitant]
     Active Substance: DEXAMETHASONE
     Dosage: 4 MILLIGRAM
     Dates: start: 20090915, end: 20090917
  8. FILGRASTIM [Suspect]
     Active Substance: FILGRASTIM
     Indication: PRODUCT USED FOR UNKNOWN INDICATION
     Dosage: 300 UNK
     Route: 065
     Dates: start: 20090801, end: 20090801
  9. PEMETREXED. [Concomitant]
     Active Substance: PEMETREXED
     Dosage: 895 MILLIGRAM
     Dates: start: 20090724, end: 20090724
  10. PEMETREXED. [Concomitant]
     Active Substance: PEMETREXED
     Dosage: 895 MILLIGRAM
     Dates: start: 20090824, end: 20090824
  11. PEMETREXED. [Concomitant]
     Active Substance: PEMETREXED
     Dosage: 905 MILLIGRAM
     Dates: start: 20090724, end: 20090724
  12. PEMETREXED. [Concomitant]
     Active Substance: PEMETREXED
     Dosage: 930 MILLIGRAM
     Dates: start: 20090705, end: 20090705
  13. PEMETREXED. [Concomitant]
     Active Substance: PEMETREXED
     Dosage: 930 MILLIGRAM
     Dates: start: 20090824, end: 20090824
  14. CARVEDILOL. [Concomitant]
     Active Substance: CARVEDILOL
     Dosage: 2.5 MILLIGRAM
     Dates: start: 20090704
  15. FOLIC ACID. [Concomitant]
     Active Substance: FOLIC ACID
     Indication: PRODUCT USED FOR UNKNOWN INDICATION
     Dosage: 1 MILLIGRAM
  16. METOCLOPRAMIDE. [Concomitant]
     Active Substance: METOCLOPRAMIDE
     Dosage: 5 MILLIGRAM
     Dates: start: 20090724, end: 20090730
  17. OXYCODONE [Concomitant]
     Active Substance: OXYCODONE
     Dosage: 10 MILLIGRAM
     Dates: start: 20090616
  18. PHENIRAMINE [Concomitant]
     Active Substance: PHENIRAMINE
     Indication: PRODUCT USED FOR UNKNOWN INDICATION
     Dosage: 4 MILLIGRAM
     Dates: start: 20090804, end: 20090807
  19. RANITIDINE. [Concomitant]
     Active Substance: RANITIDINE
     Indication: PRODUCT USED FOR UNKNOWN INDICATION
     Dosage: 150 MILLIGRAM
     Dates: start: 20090916, end: 20090930
  20. PEMETREXED. [Concomitant]
     Active Substance: PEMETREXED
     Dosage: 905 MILLIGRAM
     Dates: start: 20090705, end: 20090705
  21. PEMETREXED. [Concomitant]
     Active Substance: PEMETREXED
     Dosage: 905 MILLIGRAM
     Dates: start: 20090824, end: 20090824
  22. CARVEDILOL. [Concomitant]
     Active Substance: CARVEDILOL
     Dosage: 25 MILLIGRAM
  23. DEXAMETHASONE. [Concomitant]
     Active Substance: DEXAMETHASONE
     Indication: PRODUCT USED FOR UNKNOWN INDICATION
     Dosage: 4 MILLIGRAM
     Dates: start: 20090704, end: 20090706
  24. METOCLOPRAMIDE. [Concomitant]
     Active Substance: METOCLOPRAMIDE
     Indication: PRODUCT USED FOR UNKNOWN INDICATION
     Dosage: 5 MILLIGRAM
     Dates: start: 20090701, end: 20090707
  25. PEMETREXED. [Concomitant]
     Active Substance: PEMETREXED
     Dosage: 930 MILLIGRAM
     Dates: start: 20090724, end: 20090724
  26. DEXAMETHASONE. [Concomitant]
     Active Substance: DEXAMETHASONE
     Dosage: 4 MILLIGRAM
     Dates: start: 20090823, end: 20090825
  27. FOLIC ACID. [Concomitant]
     Active Substance: FOLIC ACID
     Dosage: 1 MILLIGRAM
     Dates: start: 20090705
  28. CARVEDILOL. [Concomitant]
     Active Substance: CARVEDILOL
     Dosage: 25 MILLIGRAM
     Dates: start: 20090704
  29. CEFTEZOLE [Concomitant]
     Active Substance: CEFTEZOLE SODIUM
     Indication: PRODUCT USED FOR UNKNOWN INDICATION
     Dosage: UNK
     Dates: start: 20090801, end: 20090801
  30. OXYCODONE [Concomitant]
     Active Substance: OXYCODONE
     Indication: PRODUCT USED FOR UNKNOWN INDICATION
     Dosage: 10 MILLIGRAM
  31. SULTAMICILLIN [Concomitant]
     Active Substance: SULTAMICILLIN
     Indication: PRODUCT USED FOR UNKNOWN INDICATION
     Dosage: 375 MILLIGRAM
     Dates: start: 20090801, end: 20090807
  32. VALPROIC ACID. [Concomitant]
     Active Substance: VALPROIC ACID
     Indication: PRODUCT USED FOR UNKNOWN INDICATION
     Dosage: 500 MILLIGRAM
  33. CARVEDILOL. [Concomitant]
     Active Substance: CARVEDILOL
     Indication: PRODUCT USED FOR UNKNOWN INDICATION
     Dosage: 2.5 MILLIGRAM
  34. DEXAMETHASONE. [Concomitant]
     Active Substance: DEXAMETHASONE
     Dosage: 4 MILLIGRAM
     Dates: start: 20090723, end: 20090725

REACTIONS (2)
  - Thrombocytopenia [Recovered/Resolved]
  - Pancytopenia [Recovered/Resolved]

NARRATIVE: CASE EVENT DATE: 20090801
